FAERS Safety Report 22243247 (Version 1)
Quarter: 2023Q2

REPORT INFORMATION
  Report Type: Spontaneous
  Country: US (occurrence: US)
  Receive Date: 20230424
  Receipt Date: 20230424
  Transmission Date: 20230721
  Serious: Yes (Other)
  Sender: FDA-Public Use
  Company Number: US-SANOFI-01582591

PATIENT
  Age: 18 Year
  Sex: Male

DRUGS (2)
  1. ELOCTATE [Suspect]
     Active Substance: EFMOROCTOCOG ALFA
     Indication: Factor VIII deficiency
     Dosage: INFUSE ~4000 UNITS (+/-10%) SLOW IV TWICE WEEKLY AND AS NEEDED FOR BLEEDS
     Route: 042
  2. ELOCTATE [Suspect]
     Active Substance: EFMOROCTOCOG ALFA
     Indication: Factor VIII deficiency
     Dosage: INFUSE ~4000 UNITS (+/-10%) SLOW IV TWICE WEEKLY AND AS NEEDED FOR BLEEDS
     Route: 042

REACTIONS (1)
  - Haemorrhage [Unknown]
